FAERS Safety Report 5489205-9 (Version None)
Quarter: 2007Q4

REPORT INFORMATION
  Report Type: 
  Country: None (occurrence: None)
  Receive Date: 20071016
  Receipt Date: 20071003
  Transmission Date: 20080405
  Serious: Yes (Death)
  Sender: FDA-Public Use
  Company Number: S07-USA-05347-01

PATIENT
  Age: 42 Year
  Sex: Female

DRUGS (2)
  1. LEXAPRO [Suspect]
     Indication: DEPRESSION
     Dosage: 40 MG QD PO
     Route: 048
     Dates: start: 20030101, end: 20070804
  2. POTASSIUM REPLACEMENT [Concomitant]

REACTIONS (8)
  - CHOLELITHIASIS [None]
  - CONVULSION [None]
  - DRUG TOXICITY [None]
  - HYPOKALAEMIA [None]
  - OVERDOSE [None]
  - PERONEAL MUSCULAR ATROPHY [None]
  - ROAD TRAFFIC ACCIDENT [None]
  - THROMBOSIS [None]
